FAERS Safety Report 5455321-0 (Version None)
Quarter: 2007Q3

REPORT INFORMATION
  Report Type: 
  Country: None (occurrence: None)
  Receive Date: 20070918
  Receipt Date: 20070907
  Transmission Date: 20080115
  Serious: Yes (Hospitalization)
  Sender: FDA-Public Use
  Company Number: IL-NOVOPROD-267449

PATIENT
  Age: 70 Year
  Sex: Female

DRUGS (1)
  1. NOVONORM [Suspect]
     Indication: INSULIN-REQUIRING TYPE II DIABETES MELLITUS
     Dates: start: 20060101

REACTIONS (1)
  - LEUKAEMIA [None]
